FAERS Safety Report 5302264-9 (Version None)
Quarter: 2007Q2

REPORT INFORMATION
  Report Type: 
  Country: None (occurrence: None)
  Receive Date: 20070413
  Receipt Date: 20070402
  Transmission Date: 20071010
  Serious: Yes (Death)
  Sender: FDA-Public Use
  Company Number: T200700378

PATIENT
  Age: 70 Year
  Sex: Male

DRUGS (2)
  1. OPTIRAY (IOVERSOL) SOLUTION FOR INJECTION, 320 [Suspect]
     Indication: ABDOMEN SCAN
     Dosage: 70 ML, SINGLE, INTRAVENOUS
     Route: 042
     Dates: start: 20070330, end: 20070330
  2. OPTIRAY (IOVERSOL) SOLUTION FOR INJECTION, 320 [Suspect]
     Indication: LIVER SCAN
     Dosage: 70 ML, SINGLE, INTRAVENOUS
     Route: 042
     Dates: start: 20070330, end: 20070330

REACTIONS (1)
  - SHOCK [None]
